FAERS Safety Report 7440217-5 (Version None)
Quarter: 2011Q2

REPORT INFORMATION
  Report Type: 
  Country: None (occurrence: None)
  Receive Date: 20110427
  Receipt Date: 20110425
  Transmission Date: 20111010
  Serious: Yes (Other)
  Sender: FDA-Public Use
  Company Number: BR-ABBOTT-09P-020-0611408-00

PATIENT
  Sex: Female
  Weight: 55 kg

DRUGS (7)
  1. METHOTREXATE [Concomitant]
     Indication: RHEUMATOID ARTHRITIS
     Route: 048
     Dates: start: 20110401
  2. HUMIRA [Suspect]
     Indication: RHEUMATOID ARTHRITIS
     Route: 058
     Dates: start: 20080319
  3. ALENDRONATE SODIUM [Concomitant]
     Indication: OSTEOPOROSIS
     Route: 048
     Dates: start: 20040101
  4. ASPARTATE MAGNESIUM [Concomitant]
     Indication: PRODUCT USED FOR UNKNOWN INDICATION
     Route: 048
  5. CALCIUM CARBONATE W/VITAMIN D [Concomitant]
     Indication: OSTEOPOROSIS
     Route: 048
     Dates: start: 20040101
  6. PREDNISONE/INDOMETHACIN [Concomitant]
     Indication: RHEUMATOID ARTHRITIS
     Dosage: 2.5 MG/25 MG, 2 IN 24 HOURS
     Route: 048
     Dates: start: 20020101
  7. FOLIC ACID [Concomitant]
     Indication: RHEUMATOID ARTHRITIS
     Route: 048
     Dates: start: 20020101

REACTIONS (2)
  - BONE EROSION [None]
  - MEDICAL DEVICE COMPLICATION [None]
